FAERS Safety Report 14015526 (Version 2)
Quarter: 2017Q4

REPORT INFORMATION
  Report Type: Spontaneous
  Country: JP (occurrence: JP)
  Receive Date: 20170927
  Receipt Date: 20171018
  Transmission Date: 20180321
  Serious: Yes (Other)
  Sender: FDA-Public Use
  Company Number: JP-SA-2017SA176686

PATIENT
  Age: 62 Year
  Sex: Male

DRUGS (1)
  1. JEVTANA [Suspect]
     Active Substance: CABAZITAXEL
     Route: 042
     Dates: start: 201708, end: 201708

REACTIONS (1)
  - Takayasu^s arteritis [Not Recovered/Not Resolved]

NARRATIVE: CASE EVENT DATE: 201708
